FAERS Safety Report 22235562 (Version 1)
Quarter: 2023Q2

REPORT INFORMATION
  Report Type: Spontaneous
  Country: US (occurrence: None)
  Receive Date: 20230419
  Receipt Date: 20230419
  Transmission Date: 20230721
  Serious: No
  Sender: FDA-Public Use
  Company Number: None

PATIENT
  Sex: Male

DRUGS (1)
  1. DIMETHYL FUMARATE [Suspect]
     Active Substance: DIMETHYL FUMARATE
     Dosage: 240 MG BID ORAL?
     Route: 048

REACTIONS (7)
  - Product dose omission in error [None]
  - Bruxism [None]
  - Pollakiuria [None]
  - Neuralgia [None]
  - Lymphoma [None]
  - Incontinence [None]
  - Burning sensation [None]
